FAERS Safety Report 15974722 (Version 1)
Quarter: 2019Q1

REPORT INFORMATION
  Report Type: Spontaneous
  Country: GB (occurrence: GB)
  Receive Date: 20190218
  Receipt Date: 20190218
  Transmission Date: 20190418
  Serious: Yes (Other)
  Sender: FDA-Public Use
  Company Number: GB-MICRO LABS LIMITED-ML2019-00359

PATIENT
  Age: 79 Year
  Sex: Female
  Weight: 50 kg

DRUGS (9)
  1. FEXOFENADINE [Concomitant]
     Active Substance: FEXOFENADINE\FEXOFENADINE HYDROCHLORIDE
     Dates: start: 20190122
  2. MENTHOL. [Concomitant]
     Active Substance: MENTHOL
     Dosage: APPLY AS NEEDED.
     Dates: start: 20190122
  3. BENDROFLUMETHIAZIDE [Concomitant]
     Active Substance: BENDROFLUMETHIAZIDE
     Dosage: EACH MORNING.
     Dates: start: 20181031, end: 20181203
  4. NITROFURANTOIN. [Concomitant]
     Active Substance: NITROFURANTOIN
     Dates: start: 20190111, end: 20190114
  5. MONOPOST [Concomitant]
     Active Substance: LATANOPROST
     Dosage: AT NIGHT TO LEFT EYE.
     Dates: start: 20180928
  6. LOSARTAN. [Suspect]
     Active Substance: LOSARTAN
     Dates: start: 20181228
  7. ATORVASTATIN [Concomitant]
     Active Substance: ATORVASTATIN
     Dates: start: 20180928
  8. RAMIPRIL. [Concomitant]
     Active Substance: RAMIPRIL
     Dates: start: 20180928
  9. COSOPT [Concomitant]
     Active Substance: DORZOLAMIDE HYDROCHLORIDE\TIMOLOL MALEATE
     Dosage: AS PER HOSPITAL.
     Dates: start: 20180928

REACTIONS (2)
  - Vulvovaginal swelling [Recovering/Resolving]
  - Rash [Unknown]

NARRATIVE: CASE EVENT DATE: 20190122
